FAERS Safety Report 10351709 (Version 3)
Quarter: 2014Q4

REPORT INFORMATION
  Report Type: Other
  Country: IT (occurrence: IT)
  Receive Date: 20140730
  Receipt Date: 20141105
  Transmission Date: 20150528
  Serious: Yes (Hospitalization)
  Sender: FDA-Public Use
  Company Number: IT-MYLAN-2014S1017811

PATIENT

DRUGS (1)
  1. CLARITHROMYCIN. [Suspect]
     Active Substance: CLARITHROMYCIN
     Indication: DRUG ABUSE
     Dosage: 1250 MG,TOTAL
     Route: 048
     Dates: start: 20140210, end: 20140210

REACTIONS (3)
  - Vomiting [Unknown]
  - Dysgeusia [Unknown]
  - Drug abuse [Unknown]

NARRATIVE: CASE EVENT DATE: 20140210
